FAERS Safety Report 23661894 (Version 3)
Quarter: 2024Q2

REPORT INFORMATION
  Report Type: Spontaneous
  Country: DE (occurrence: DE)
  Receive Date: 20240322
  Receipt Date: 20240520
  Transmission Date: 20240716
  Serious: Yes (Hospitalization, Other)
  Sender: FDA-Public Use
  Company Number: DE-AMGEN-DEUSP2024055362

PATIENT
  Age: 71 Year
  Sex: Female

DRUGS (7)
  1. PROLIA [Suspect]
     Active Substance: DENOSUMAB
     Indication: Osteoporosis postmenopausal
     Dosage: UNK, Q6MO
     Route: 065
     Dates: start: 201410
  2. ASPIRIN [Concomitant]
     Active Substance: ASPIRIN
     Dosage: 100 MILLIGRAM,SMALLEST DOSAGE THAT CAN BE PRESCRIBED BY MEANS OF DIVIDING: 25 MG (CROSS-SCORED - FOU
     Route: 048
     Dates: start: 20240308
  3. ATORVASTATIN [Concomitant]
     Active Substance: ATORVASTATIN
     Dosage: 40 MILLIGRAM,SMALLEST DOSE THAT CAN BE PRESCRIBED: 10 MG, CANNOT BE DIVIDED
     Route: 048
     Dates: start: 20240307
  4. CALCIUM CARBONATE [Concomitant]
     Active Substance: CALCIUM CARBONATE
     Dosage: 500 MILLIGRAM
     Route: 048
     Dates: start: 20240308
  5. CANDESARTAN [Concomitant]
     Active Substance: CANDESARTAN
     Dosage: 4 MILLIGRAM, BID
     Route: 048
     Dates: start: 20240307
  6. CHOLECALCIFEROL [Concomitant]
     Active Substance: CHOLECALCIFEROL
     Dosage: 1000 INTERNATIONAL UNIT
     Dates: start: 20240308
  7. DULOXETINE [Concomitant]
     Active Substance: DULOXETINE
     Dosage: 30 MICROGRAM
     Dates: start: 20240308

REACTIONS (9)
  - Basal ganglia stroke [Unknown]
  - Fibromuscular dysplasia [Unknown]
  - Borrelia infection [Unknown]
  - Pain [Unknown]
  - Arthralgia [Not Recovered/Not Resolved]
  - Back pain [Unknown]
  - Paraesthesia [Unknown]
  - Pain in extremity [Not Recovered/Not Resolved]
  - Musculoskeletal pain [Unknown]

NARRATIVE: CASE EVENT DATE: 20190101
